FAERS Safety Report 19710930 (Version 1)
Quarter: 2021Q3

REPORT INFORMATION
  Report Type: Spontaneous
  Country: DE (occurrence: JP)
  Receive Date: 20210817
  Receipt Date: 20210817
  Transmission Date: 20211014
  Serious: Yes (Other)
  Sender: FDA-Public Use
  Company Number: JP-ELI_LILLY_AND_COMPANY-JP202108006314

PATIENT

DRUGS (9)
  1. FLUOROURACIL. [Concomitant]
     Active Substance: FLUOROURACIL
     Indication: RECTAL CANCER METASTATIC
     Dosage: UNK
     Dates: start: 20200916
  2. ECLAR [Concomitant]
     Active Substance: DEPRODONE PROPIONATE
     Indication: ECZEMA
     Dosage: 5 G, UNK
     Route: 061
     Dates: start: 20200916
  3. RINDERON VG [Concomitant]
     Active Substance: BETAMETHASONE VALERATE\GENTAMICIN SULFATE
     Indication: PARONYCHIA
     Dosage: 5 G, UNK
     Route: 061
     Dates: start: 20200916
  4. LEVOFOLINATE CALCIUM [Concomitant]
     Active Substance: LEVOLEUCOVORIN CALCIUM
     Indication: RECTAL CANCER METASTATIC
     Dosage: UNK
     Dates: start: 20200916
  5. SPIRAZON [Concomitant]
     Indication: ECZEMA
     Dosage: TWICE DAILY; HEAD SIN.
     Route: 061
     Dates: start: 20200916
  6. HEPARINOIDE [Concomitant]
     Indication: DRY SKIN
     Dosage: 100 G, UNK
     Route: 061
     Dates: start: 20200916
  7. OXALIPLATIN. [Concomitant]
     Active Substance: OXALIPLATIN
     Indication: RECTAL CANCER METASTATIC
     Dosage: UNK
     Dates: start: 20200916
  8. ERBITUX [Suspect]
     Active Substance: CETUXIMAB
     Indication: RECTAL CANCER METASTATIC
     Dosage: UNK UNK, UNKNOWN
     Route: 041
     Dates: start: 20200916
  9. STIBRON [Concomitant]
     Indication: ECZEMA
     Dosage: 5 G, UNK
     Route: 061
     Dates: start: 20200916

REACTIONS (2)
  - Blood loss anaemia [Unknown]
  - Stoma site haemorrhage [Unknown]

NARRATIVE: CASE EVENT DATE: 2021
